FAERS Safety Report 8770273 (Version 1)
Quarter: 2012Q4

REPORT INFORMATION
  Report Type: 
  Country: BR (occurrence: BR)
  Receive Date: 20120904
  Receipt Date: 20120904
  Transmission Date: 20130627
  Serious: Yes (Other)
  Sender: FDA-Public Use
  Company Number: PHHY2009BR071192

PATIENT

DRUGS (1)
  1. CICLOSPORIN [Suspect]
     Indication: NEPHROTIC SYNDROME

REACTIONS (1)
  - Drug resistance [Unknown]
